FAERS Safety Report 4751834-5 (Version None)
Quarter: 2005Q3

REPORT INFORMATION
  Report Type: 
  Country: None (occurrence: None)
  Receive Date: 20050822
  Receipt Date: 20050721
  Transmission Date: 20060218
  Serious: No
  Sender: FDA-Public Use
  Company Number: PHEH2005US08109

PATIENT
  Sex: Female

DRUGS (1)
  1. ZELNORM [Suspect]
     Dosage: 6 MG, QD, ORAL
     Route: 048
     Dates: start: 20050701

REACTIONS (4)
  - FEELING ABNORMAL [None]
  - IRRITABILITY [None]
  - SLEEP DISORDER [None]
  - SOMNOLENCE [None]
